FAERS Safety Report 7289430-0 (Version None)
Quarter: 2011Q1

REPORT INFORMATION
  Report Type: 
  Country: None (occurrence: None)
  Receive Date: 20110211
  Receipt Date: 20110208
  Transmission Date: 20110831
  Serious: Yes (Hospitalization, Other)
  Sender: FDA-Public Use
  Company Number: BR-PFIZER INC-2011027721

PATIENT
  Age: 60 Year
  Sex: Female
  Weight: 86 kg

DRUGS (7)
  1. ALDACTONE [Suspect]
     Indication: HYPERTENSION
     Dosage: 25 MG, 1X/DAY
     Route: 048
     Dates: start: 20101213
  2. LASIX [Concomitant]
     Indication: DIURETIC THERAPY
     Dosage: 40 MG, UNK
  3. PERINDOPRIL [Concomitant]
     Indication: HYPERTENSION
     Dosage: 4 MG, UNK
     Dates: start: 20101213
  4. ALPRAZOLAM [Concomitant]
     Indication: DEPRESSION
     Dosage: 1 MG, 2X/DAY
     Dates: start: 20020101
  5. ATENOLOL [Concomitant]
     Dosage: 100 MG, UNK
  6. CLORANA [Concomitant]
     Indication: HYPERTENSION
     Dosage: 25 MG, UNK
     Dates: start: 20101213
  7. CILOSTAZOL [Concomitant]
     Dosage: 50 MG, UNK
     Dates: start: 20101213

REACTIONS (5)
  - DRUG INEFFECTIVE [None]
  - DIARRHOEA [None]
  - BLOOD SODIUM DECREASED [None]
  - VOMITING [None]
  - VERTIGO [None]
